FAERS Safety Report 24425500 (Version 1)
Quarter: 2024Q4

REPORT INFORMATION
  Report Type: Report from Study
  Country: JP (occurrence: JP)
  Receive Date: 20241011
  Receipt Date: 20241011
  Transmission Date: 20250115
  Serious: Yes (Hospitalization)
  Sender: ABBVIE
  Company Number: JP-TAKEDA-2019TJP005750

PATIENT
  Age: 66 Year
  Sex: Male
  Weight: 86 kg

DRUGS (15)
  1. LEUPROLIDE ACETATE [Suspect]
     Active Substance: LEUPROLIDE ACETATE
     Indication: Bulbospinal muscular atrophy congenital
     Dosage: 11.25 MILLIGRAM, EVERY 3 MONTHS
     Route: 058
     Dates: start: 20180404
  2. ZETIA [Concomitant]
     Active Substance: EZETIMIBE
     Indication: Product used for unknown indication
     Dosage: 10 MILLIGRAM
     Route: 065
  3. TRANEXAMIC ACID [Concomitant]
     Active Substance: TRANEXAMIC ACID
     Indication: Bulbospinal muscular atrophy congenital
     Dosage: 1500 MILLIGRAM
     Route: 065
     Dates: start: 20181212
  4. TRANEXAMIC ACID [Concomitant]
     Active Substance: TRANEXAMIC ACID
     Indication: Bulbospinal muscular atrophy congenital
     Dosage: 1000 MILLIGRAM
     Route: 065
     Dates: end: 20240226
  5. DOXAZOSIN MESYLATE [Concomitant]
     Active Substance: DOXAZOSIN MESYLATE
     Indication: Product used for unknown indication
     Dosage: 4 MILLIGRAM
     Route: 065
  6. IMIDAPRIL HYDROCHLORIDE [Concomitant]
     Active Substance: IMIDAPRIL HYDROCHLORIDE
     Indication: Product used for unknown indication
     Dosage: 10 MILLIGRAM
     Route: 065
  7. NIFEDIPINE [Concomitant]
     Active Substance: NIFEDIPINE
     Indication: Product used for unknown indication
     Dosage: 40 MILLIGRAM
     Route: 065
  8. KIKYOTO [Concomitant]
     Indication: Bulbospinal muscular atrophy congenital
     Dosage: 7.5 GRAM
     Route: 065
     Dates: start: 20181212
  9. MONTELUKAST [Concomitant]
     Active Substance: MONTELUKAST
     Indication: Bulbospinal muscular atrophy congenital
     Dosage: 10 MILLIGRAM
     Route: 065
     Dates: start: 20231128
  10. AMBROXOL HYDROCHLORIDE [Concomitant]
     Active Substance: AMBROXOL HYDROCHLORIDE
     Indication: Bulbospinal muscular atrophy congenital
     Dosage: 45 MILLIGRAM
     Route: 065
     Dates: start: 20190306
  11. AMBROXOL HYDROCHLORIDE [Concomitant]
     Active Substance: AMBROXOL HYDROCHLORIDE
     Indication: Bulbospinal muscular atrophy congenital
     Dosage: 45 MILLIGRAM
     Route: 065
     Dates: start: 20200716, end: 20210324
  12. RABEPRAZOLE SODIUM [Concomitant]
     Active Substance: RABEPRAZOLE SODIUM
     Indication: Product used for unknown indication
     Dosage: 10 MILLIGRAM
     Route: 065
     Dates: start: 20200716
  13. TOFOGLIFLOZIN [Concomitant]
     Active Substance: TOFOGLIFLOZIN
     Indication: Diabetes mellitus
     Dosage: 20 MILLIGRAM
     Route: 065
     Dates: start: 20200716, end: 20211229
  14. ANAGLIPTIN [Concomitant]
     Active Substance: ANAGLIPTIN
     Indication: Diabetes mellitus
     Dosage: 200 MILLIGRAM
     Route: 065
     Dates: start: 20200716, end: 20200924
  15. METFORMIN HYDROCHLORIDE [Concomitant]
     Active Substance: METFORMIN HYDROCHLORIDE
     Indication: Diabetes mellitus
     Dosage: 1000 MILLIGRAM
     Route: 065
     Dates: start: 20200716, end: 20201228

REACTIONS (5)
  - Dyspnoea [Unknown]
  - Fall [Recovered/Resolved]
  - Nasopharyngitis [Recovered/Resolved]
  - Back pain [Recovered/Resolved]
  - Injection site induration [Recovered/Resolved]

NARRATIVE: CASE EVENT DATE: 20180501
